FAERS Safety Report 9676149 (Version 1)
Quarter: 2013Q4

REPORT INFORMATION
  Report Type: Spontaneous
  Country: US (occurrence: US)
  Receive Date: 20131107
  Receipt Date: 20131107
  Transmission Date: 20140711
  Serious: Yes (Other)
  Sender: FDA-Public Use
  Company Number: US-PFIZER INC-2013313736

PATIENT
  Sex: 0

DRUGS (2)
  1. ZIPRASIDONE HCL [Suspect]
     Dosage: UNK
  2. MEROPENEM [Suspect]
     Dosage: UNK

REACTIONS (1)
  - Neutropenia [Unknown]
